FAERS Safety Report 15534347 (Version 1)
Quarter: 2018Q4

REPORT INFORMATION
  Report Type: Report from Study
  Country: ZA (occurrence: ZA)
  Receive Date: 20181021
  Receipt Date: 20181021
  Transmission Date: 20190205
  Serious: Yes (Death)
  Sender: FDA-Public Use
  Company Number: PHHY2018ZA131656

PATIENT
  Sex: Male

DRUGS (1)
  1. OMEPRAZOLE SANDOZ [Suspect]
     Active Substance: OMEPRAZOLE
     Indication: DYSPEPSIA
     Dosage: 20 MG, UNK
     Route: 048
     Dates: start: 201805, end: 201809

REACTIONS (1)
  - Death [Fatal]
